FAERS Safety Report 4420868-2 (Version None)
Quarter: 2004Q3

REPORT INFORMATION
  Report Type: 
  Country: None (occurrence: None)
  Receive Date: 20040804
  Receipt Date: 20040722
  Transmission Date: 20050211
  Serious: Yes (Hospitalization)
  Sender: FDA-Public Use
  Company Number: 2004EU001435

PATIENT
  Age: 54 Year
  Sex: Male

DRUGS (1)
  1. FK506 (TACROLIMUS CAPSULES) CAPSULE [Suspect]
     Indication: LIVER TRANSPLANT
     Dosage: 5.00 MG, /D, ORAL
     Route: 048
     Dates: start: 20040119

REACTIONS (1)
  - DIPLOPIA [None]
